FAERS Safety Report 9677887 (Version 1)
Quarter: 2013Q4

REPORT INFORMATION
  Report Type: Spontaneous
  Country: US (occurrence: US)
  Receive Date: 20131108
  Receipt Date: 20131108
  Transmission Date: 20140711
  Serious: No
  Sender: FDA-Public Use
  Company Number: US-TEVA-443066USA

PATIENT
  Sex: Female
  Weight: 61.29 kg

DRUGS (2)
  1. NUVIGIL [Suspect]
     Indication: MULTIPLE SCLEROSIS
     Dosage: 150 MILLIGRAM DAILY;
  2. AVONEX [Concomitant]
     Indication: MULTIPLE SCLEROSIS

REACTIONS (4)
  - Nausea [Recovered/Resolved]
  - Heart rate irregular [Recovered/Resolved]
  - Headache [Recovered/Resolved]
  - Off label use [Unknown]
